FAERS Safety Report 14381720 (Version 1)
Quarter: 2018Q1

REPORT INFORMATION
  Report Type: Other
  Country: US (occurrence: US)
  Receive Date: 20180112
  Receipt Date: 20180112
  Transmission Date: 20180509
  Serious: Yes (Death)
  Sender: FDA-Public Use
  Company Number: US-GENUS_LIFESCIENCES-USA-POI0580201800064

PATIENT
  Age: 68 Year
  Sex: Female

DRUGS (8)
  1. LEVOLET (LEVOTHYROXINE) [Suspect]
     Active Substance: LEVOTHYROXINE
     Dates: end: 2016
  2. LOSARTAN. [Suspect]
     Active Substance: LOSARTAN
     Dates: end: 2016
  3. LORAZEPAM. [Suspect]
     Active Substance: LORAZEPAM
     Dates: end: 2016
  4. PROPRANOLOL [Suspect]
     Active Substance: PROPRANOLOL HYDROCHLORIDE
     Dates: end: 2016
  5. METFORMIN [Suspect]
     Active Substance: METFORMIN HYDROCHLORIDE
     Dates: end: 2016
  6. ESCITALOPRAM [Suspect]
     Active Substance: ESCITALOPRAM OXALATE
     Dates: end: 2016
  7. GLYBURIDE. [Suspect]
     Active Substance: GLYBURIDE
     Dates: end: 2016
  8. DILTIAZEM. [Suspect]
     Active Substance: DILTIAZEM
     Dates: end: 2016

REACTIONS (1)
  - Completed suicide [Fatal]

NARRATIVE: CASE EVENT DATE: 2016
